FAERS Safety Report 8248346-3 (Version None)
Quarter: 2012Q1

REPORT INFORMATION
  Report Type: 
  Country: None (occurrence: None)
  Receive Date: 20120330
  Receipt Date: 20120315
  Transmission Date: 20120608
  Serious: Yes (Other)
  Sender: FDA-Public Use
  Company Number: US-WATSON-2012-04151

PATIENT
  Age: 60 Year
  Sex: Male
  Weight: 74 kg

DRUGS (1)
  1. BACLOFEN [Suspect]
     Indication: MUSCLE SPASMS
     Dosage: 25 MG, BID
     Route: 065

REACTIONS (4)
  - NEUROTOXICITY [None]
  - COMA [None]
  - OVERDOSE [None]
  - RESPIRATORY FAILURE [None]
